FAERS Safety Report 4604985-X (Version None)
Quarter: 2005Q1

REPORT INFORMATION
  Report Type: 
  Country: None (occurrence: None)
  Receive Date: 20050217
  Receipt Date: 20041018
  Transmission Date: 20050727
  Serious: No
  Sender: FDA-Public Use
  Company Number: S04-USA-06991-01

PATIENT
  Sex: Female

DRUGS (1)
  1. NAMENDA [Suspect]
     Indication: PAIN
     Dates: start: 20041017

REACTIONS (1)
  - DIZZINESS [None]
